FAERS Safety Report 7463992-2 (Version None)
Quarter: 2011Q2

REPORT INFORMATION
  Report Type: 
  Country: None (occurrence: None)
  Receive Date: 20110506
  Receipt Date: 20110413
  Transmission Date: 20111010
  Serious: Yes (Other)
  Sender: FDA-Public Use
  Company Number: US-BAYER-200829320NA

PATIENT
  Age: 56 Year
  Sex: Male
  Weight: 81 kg

DRUGS (21)
  1. PROHANCE [Suspect]
     Indication: ARTERIOGRAM CORONARY
  2. CELLCEPT [Concomitant]
  3. ASPIRIN [Concomitant]
  4. AMBIEN [Concomitant]
  5. CELEBREX [Concomitant]
  6. CONTRAST MEDIA [Suspect]
     Indication: NUCLEAR MAGNETIC RESONANCE IMAGING BRAIN
     Dates: start: 20030830, end: 20030830
  7. ALPRAZOLAM [Concomitant]
  8. DIOVAN [Concomitant]
  9. OPTIRAY 350 [Concomitant]
     Dates: start: 20040217, end: 20040217
  10. MAGNEVIST [Suspect]
     Indication: ARTERIOGRAM CORONARY
  11. OMNISCAN [Suspect]
     Indication: ARTERIOGRAM CORONARY
  12. OPTIMARK [Suspect]
     Indication: ARTERIOGRAM CORONARY
  13. NEORAL [Concomitant]
  14. HYTRIN [Concomitant]
  15. M.V.I. [Concomitant]
  16. CONTRAST MEDIA [Concomitant]
     Indication: CATHETERISATION CARDIAC
     Dates: start: 20030225, end: 20030225
  17. OPTIRAY 350 [Concomitant]
     Dates: start: 20030225, end: 20030225
  18. MULTIHANCE [Suspect]
     Indication: ARTERIOGRAM CORONARY
  19. CYCLOSPORINE [Concomitant]
  20. BENADRYL [Concomitant]
  21. CONTRAST MEDIA [Concomitant]
     Dates: start: 20040217, end: 20040217

REACTIONS (20)
  - PAIN OF SKIN [None]
  - MYALGIA [None]
  - BURNING SENSATION [None]
  - INJURY [None]
  - GENERAL PHYSICAL HEALTH DETERIORATION [None]
  - MOBILITY DECREASED [None]
  - PARAESTHESIA [None]
  - MUSCULOSKELETAL STIFFNESS [None]
  - SKIN PLAQUE [None]
  - ANXIETY [None]
  - SKIN INDURATION [None]
  - SWELLING [None]
  - SKIN TIGHTNESS [None]
  - NEPHROGENIC SYSTEMIC FIBROSIS [None]
  - RASH MACULAR [None]
  - SKIN DISCOLOURATION [None]
  - PAIN [None]
  - EMOTIONAL DISTRESS [None]
  - ARTHRALGIA [None]
  - JOINT STIFFNESS [None]
